FAERS Safety Report 6456269-5 (Version None)
Quarter: 2009Q4

REPORT INFORMATION
  Report Type: 
  Country: None (occurrence: None)
  Receive Date: 20091125
  Receipt Date: 20091113
  Transmission Date: 20100525
  Serious: Yes (Death, Hospitalization, Other)
  Sender: FDA-Public Use
  Company Number: US-BAYER-200920431NA

PATIENT
  Age: 22 Year
  Sex: Female
  Weight: 76 kg

DRUGS (2)
  1. YASMIN [Suspect]
     Indication: ACNE
     Dosage: 1 TAB/DAY
     Route: 048
     Dates: start: 20040709, end: 20040723
  2. XANAX [Concomitant]

REACTIONS (10)
  - ADRENOCORTICAL CARCINOMA [None]
  - BLOOD POTASSIUM DECREASED [None]
  - DISORIENTATION [None]
  - DISTURBANCE IN ATTENTION [None]
  - HEART RATE INCREASED [None]
  - HIRSUTISM [None]
  - NOCTURIA [None]
  - PAIN IN EXTREMITY [None]
  - PALPITATIONS [None]
  - THINKING ABNORMAL [None]
